FAERS Safety Report 25019842 (Version 1)
Quarter: 2025Q1

REPORT INFORMATION
  Report Type: Spontaneous
  Country: CN (occurrence: CN)
  Receive Date: 20250227
  Receipt Date: 20250227
  Transmission Date: 20250408
  Serious: Yes (Other)
  Sender: PFIZER
  Company Number: CN-PFIZER INC-PV202500023971

PATIENT
  Age: 54 Year
  Sex: Female
  Weight: 60 kg

DRUGS (4)
  1. EPIRUBICIN [Suspect]
     Active Substance: EPIRUBICIN
     Indication: Breast cancer
     Dosage: 130 MG, 1X/DAY
     Route: 041
     Dates: start: 20250119, end: 20250119
  2. CYCLOPHOSPHAMIDE [Suspect]
     Active Substance: CYCLOPHOSPHAMIDE
     Indication: Breast cancer
     Dosage: 1 G, 1X/DAY
     Route: 041
     Dates: start: 20250119, end: 20250119
  3. SODIUM CHLORIDE [Concomitant]
     Active Substance: SODIUM CHLORIDE
     Indication: Breast cancer
     Dosage: 100 ML, 1X/DAY
     Route: 041
     Dates: start: 20250119, end: 20250119
  4. SODIUM CHLORIDE [Concomitant]
     Active Substance: SODIUM CHLORIDE
     Indication: Breast cancer
     Dosage: 500 ML, 1X/DAY
     Route: 041
     Dates: start: 20250119, end: 20250119

REACTIONS (2)
  - Drug-induced liver injury [Unknown]
  - Transaminases increased [Unknown]

NARRATIVE: CASE EVENT DATE: 20250209
